FAERS Safety Report 8239203-7 (Version None)
Quarter: 2012Q1

REPORT INFORMATION
  Report Type: 
  Country: None (occurrence: None)
  Receive Date: 20120328
  Receipt Date: 20120320
  Transmission Date: 20120608
  Serious: No
  Sender: FDA-Public Use
  Company Number: US-BIOGENIDEC-2012BI009786

PATIENT
  Age: 59 Year
  Sex: Female

DRUGS (1)
  1. TYSABRI [Suspect]
     Indication: MULTIPLE SCLEROSIS
     Route: 042
     Dates: start: 20110630

REACTIONS (7)
  - WEIGHT INCREASED [None]
  - MEMORY IMPAIRMENT [None]
  - GAIT DISTURBANCE [None]
  - BACK PAIN [None]
  - FEELING ABNORMAL [None]
  - ABDOMINAL PAIN UPPER [None]
  - VISUAL IMPAIRMENT [None]
